FAERS Safety Report 4287355-6 (Version None)
Quarter: 2004Q1

REPORT INFORMATION
  Report Type: 
  Country: None (occurrence: None)
  Receive Date: 20040209
  Receipt Date: 20030527
  Transmission Date: 20041129
  Serious: No
  Sender: FDA-Public Use
  Company Number: US-GLAXOSMITHKLINE-A0409642A

PATIENT
  Age: 50 Year
  Sex: Female

DRUGS (6)
  1. PAXIL CR [Suspect]
     Indication: DEPRESSION
     Dosage: 25MG PER DAY
     Route: 048
     Dates: start: 20010101
  2. ADVAIR DISKUS 100/50 [Concomitant]
  3. DEPAKOTE [Concomitant]
  4. SEROQUEL [Concomitant]
  5. ALPRAZOLAM [Concomitant]
  6. ABILIFY [Concomitant]

REACTIONS (2)
  - HAEMATOCHEZIA [None]
  - HAEMORRHOIDAL HAEMORRHAGE [None]
